FAERS Safety Report 5605354-6 (Version None)
Quarter: 2008Q1

REPORT INFORMATION
  Report Type: 
  Country: None (occurrence: None)
  Receive Date: 20080129
  Receipt Date: 20080116
  Transmission Date: 20080703
  Serious: Yes (Other)
  Sender: FDA-Public Use
  Company Number: US-PFIZER INC-2008007353

PATIENT
  Sex: Female
  Weight: 53.2 kg

DRUGS (4)
  1. CHANTIX [Suspect]
     Indication: SMOKING CESSATION THERAPY
     Dates: start: 20071001, end: 20080108
  2. ATIVAN [Concomitant]
     Indication: ANXIETY
  3. INTERFERON BETA [Concomitant]
     Indication: MULTIPLE SCLEROSIS
  4. ORAL CONTRACEPTIVE NOS [Concomitant]

REACTIONS (11)
  - ANGER [None]
  - ANXIETY [None]
  - CONSTIPATION [None]
  - DEPRESSION [None]
  - DISTURBANCE IN ATTENTION [None]
  - HYPERTENSION [None]
  - MANIA [None]
  - MEMORY IMPAIRMENT [None]
  - MENTAL DISORDER [None]
  - OEDEMA PERIPHERAL [None]
  - THINKING ABNORMAL [None]
